FAERS Safety Report 14060888 (Version 2)
Quarter: 2017Q4

REPORT INFORMATION
  Report Type: Spontaneous
  Country: NL (occurrence: NL)
  Receive Date: 20171009
  Receipt Date: 20171022
  Transmission Date: 20180321
  Serious: No
  Sender: FDA-Public Use
  Company Number: PHHY2017NL145210

PATIENT
  Age: 17 Year
  Sex: Male
  Weight: 80 kg

DRUGS (4)
  1. VALPROIC ACID. [Concomitant]
     Active Substance: VALPROIC ACID
     Indication: EPILEPSY
     Dosage: 750 MG, BID
     Route: 048
     Dates: start: 2014
  2. LEVETIRACETAM. [Concomitant]
     Active Substance: LEVETIRACETAM
     Indication: EPILEPSY
     Dosage: 250 MG, BID
     Route: 048
     Dates: start: 2017
  3. TAFINLAR [Suspect]
     Active Substance: DABRAFENIB MESYLATE
     Indication: ANAPLASTIC ASTROCYTOMA
     Dosage: 150 MG, BID
     Route: 065
     Dates: start: 20170717
  4. MEKINIST [Suspect]
     Active Substance: TRAMETINIB DIMETHYL SULFOXIDE
     Indication: ANAPLASTIC ASTROCYTOMA
     Dosage: 2 MG, QD
     Route: 065
     Dates: start: 20170717

REACTIONS (5)
  - Platelet count decreased [Recovering/Resolving]
  - Product use in unapproved indication [Unknown]
  - Fatigue [Unknown]
  - Toxicity to various agents [Recovering/Resolving]
  - Headache [Unknown]

NARRATIVE: CASE EVENT DATE: 20171002
